FAERS Safety Report 8218302-X (Version None)
Quarter: 2012Q1

REPORT INFORMATION
  Report Type: 
  Country: None (occurrence: None)
  Receive Date: 20120305
  Receipt Date: 20120103
  Transmission Date: 20120608
  Serious: No
  Sender: FDA-Public Use
  Company Number: 1000026682

PATIENT
  Age: 68 Year
  Sex: Male

DRUGS (5)
  1. OXYGEN (OXYGEN) (OXYGEN) [Concomitant]
  2. DALIRESP [Suspect]
     Indication: CHRONIC OBSTRUCTIVE PULMONARY DISEASE
     Dosage: 500 MCG (500 MCG, 1 IN 1 D), ORAL
     Route: 048
     Dates: start: 20111228, end: 20120101
  3. SYNTHROID (LEVOTHYROXINE SODIUM) (LEVOTHYROXINE SODIUM) [Concomitant]
  4. METFORMIN HCL [Concomitant]
  5. COZAAR [Concomitant]

REACTIONS (6)
  - HEADACHE [None]
  - NAUSEA [None]
  - VOMITING [None]
  - DIZZINESS [None]
  - ASTHENIA [None]
  - TREMOR [None]
